FAERS Safety Report 9221571 (Version 1)
Quarter: 2013Q1

REPORT INFORMATION
  Report Type: Spontaneous
  Country: US (occurrence: None)
  Receive Date: 20120831
  Receipt Date: 20120831
  Transmission Date: 20140127
  Serious: No
  Sender: FDA-Public Use
  Company Number: 1000031434

PATIENT
  Age: 64 Year
  Sex: Male

DRUGS (12)
  1. DALIRESP [Suspect]
     Indication: CHRONIC OBSTRUCTIVE PULMONARY DISEASE
     Dosage: 1 N 1
     Route: 048
     Dates: start: 201204
  2. VERAPAMIL(VERAPAMIL)(VERAPAMIL) [Concomitant]
  3. SIMVASTATIN(SIMVASTATIN)(SIMVASTATIN) [Concomitant]
  4. POLYETHYLENE GLYCOL (POLYETHYLENE GLYCOL) (POLYETHYLENE GLYCOL) [Concomitant]
  5. LEVOXYL(LEVOTHROXINE SODIUM)(LEVOTHYROXINE SODIUM) [Concomitant]
  6. WARFARIN(WARFARIN)(WARFARIN) [Concomitant]
  7. DIAZEPAM(DIAZEPAM)(DIAZEPAM) [Concomitant]
  8. DICYCLOMINE(DICYCLOMINE)(DICYCLOMINE) [Concomitant]
  9. PERCOCET (OXYCODONE, ACETAMINOPHEN)(OXYCODONE, ACETAMINOPHEN) [Concomitant]
  10. ALBUTEROL(ALBUTEROL)(ALBUTEROL) [Concomitant]
  11. ADVAIR(FLUTICASONE)(FLUTICASONE) [Concomitant]
  12. SENOKOT(SENNA)(SENNA) [Concomitant]

REACTIONS (2)
  - Hyperhidrosis [None]
  - Insomnia [None]
